FAERS Safety Report 7275990-2 (Version None)
Quarter: 2011Q1

REPORT INFORMATION
  Report Type: 
  Country: None (occurrence: None)
  Receive Date: 20110204
  Receipt Date: 20110124
  Transmission Date: 20110831
  Serious: Yes (Hospitalization)
  Sender: FDA-Public Use
  Company Number: B0656210A

PATIENT
  Sex: Female
  Weight: 53 kg

DRUGS (9)
  1. KALETRA [Concomitant]
     Route: 048
     Dates: start: 20020523, end: 20071012
  2. STAVUDINE [Concomitant]
     Route: 048
     Dates: start: 20050630, end: 20071012
  3. TRUVADA [Concomitant]
     Route: 048
     Dates: start: 20070515
  4. OMEPRAZOLE [Concomitant]
     Route: 048
     Dates: start: 20051026
  5. UNKNOWN DRUG [Concomitant]
     Route: 048
     Dates: start: 20000115
  6. VALACICLOVIR [Concomitant]
     Route: 048
     Dates: start: 19920615
  7. TENOFOVIR [Concomitant]
     Route: 048
     Dates: start: 20030205, end: 20071012
  8. MARAVIROC [Suspect]
     Indication: HIV INFECTION
     Dosage: 150MG TWICE PER DAY
     Dates: start: 20050701, end: 20071009
  9. EMTRICITABINE [Concomitant]
     Route: 048
     Dates: start: 20050630, end: 20071012

REACTIONS (1)
  - DEMYELINATION [None]
